FAERS Safety Report 9961388 (Version 3)
Quarter: 2014Q1

REPORT INFORMATION
  Report Type: Report from Study
  Country: NZ (occurrence: NZ)
  Receive Date: 20140305
  Receipt Date: 20140310
  Transmission Date: 20141002
  Serious: Yes (Hospitalization, Disabling)
  Sender: FDA-Public Use
  Company Number: PHHY2014NZ020934

PATIENT
  Sex: Male
  Weight: 94.6 kg

DRUGS (4)
  1. CLOZARIL [Suspect]
     Dates: start: 19921230, end: 20140220
  2. RISPERDAL CONSTA [Concomitant]
  3. SODIUM VALPROATE [Concomitant]
     Indication: EPILEPSY
     Dosage: 1.5 G, UNK
     Route: 048
  4. PAROXETINE [Concomitant]
     Indication: DEPRESSION
     Dosage: 60 MG, UNK
     Route: 048

REACTIONS (4)
  - Disability [Unknown]
  - Volvulus [Recovering/Resolving]
  - Constipation [Recovering/Resolving]
  - Drug ineffective [Not Recovered/Not Resolved]
